FAERS Safety Report 17560439 (Version 1)
Quarter: 2020Q1

REPORT INFORMATION
  Report Type: Spontaneous
  Country: US (occurrence: US)
  Receive Date: 20200319
  Receipt Date: 20200319
  Transmission Date: 20200409
  Serious: Yes (Death, Hospitalization, Other)
  Sender: FDA-Public Use
  Company Number: US-009507513-2003USA006263

PATIENT
  Sex: Male

DRUGS (3)
  1. ZOSTAVAX [Suspect]
     Active Substance: VARICELLA-ZOSTER VIRUS STRAIN OKA/MERCK LIVE ANTIGEN
     Indication: PROPHYLAXIS
     Dates: start: 2018
  2. INVANZ [Suspect]
     Active Substance: ERTAPENEM SODIUM
     Dosage: UNK
     Route: 042
     Dates: start: 2018
  3. KEYTRUDA [Suspect]
     Active Substance: PEMBROLIZUMAB
     Dosage: UNK

REACTIONS (25)
  - Fall [Unknown]
  - Paraesthesia [Unknown]
  - Epidural injection [Unknown]
  - Pallor [Unknown]
  - Secretion discharge [Unknown]
  - Cough [Unknown]
  - Thrombosis [Unknown]
  - Cellulitis [Unknown]
  - Pneumonia [Unknown]
  - Adverse event [Unknown]
  - Dyskinesia [Unknown]
  - Malaise [Unknown]
  - Dyspnoea [Unknown]
  - Pyrexia [Unknown]
  - Extradural abscess [Unknown]
  - Haemorrhage [Unknown]
  - Asthenia [Unknown]
  - Death [Fatal]
  - Lung cancer metastatic [Unknown]
  - Pneumothorax [Unknown]
  - Rash [Unknown]
  - Hyperhidrosis [Unknown]
  - Pain [Unknown]
  - Back injury [Unknown]
  - Oxygen saturation abnormal [Unknown]

NARRATIVE: CASE EVENT DATE: 2018
